FAERS Safety Report 10379917 (Version 2)
Quarter: 2014Q3

REPORT INFORMATION
  Report Type: Spontaneous
  Country: JP (occurrence: JP)
  Receive Date: 20140813
  Receipt Date: 20140827
  Transmission Date: 20150326
  Serious: Yes (Death)
  Sender: FDA-Public Use
  Company Number: JP-ROCHE-1448311

PATIENT
  Age: 74 Year
  Sex: Male

DRUGS (4)
  1. XELODA [Suspect]
     Active Substance: CAPECITABINE
     Indication: COLON CANCER METASTATIC
     Dosage: 2 WEEKS ADMINISTRATION FOLLOWED BY 1 WEEK REST
     Route: 048
     Dates: start: 20140708, end: 20140722
  2. XELODA [Suspect]
     Active Substance: CAPECITABINE
     Indication: COLON CANCER METASTATIC
     Dosage: 2 WEEKS ADMINISTRATION FOLLOWED BY 1 WEEK REST
     Route: 048
     Dates: start: 20140729, end: 20140802
  3. ELPLAT [Concomitant]
     Active Substance: OXALIPLATIN
     Indication: COLON CANCER METASTATIC
     Route: 041
     Dates: start: 20140708, end: 20140708
  4. ELPLAT [Concomitant]
     Active Substance: OXALIPLATIN
     Indication: COLON CANCER METASTATIC
     Route: 041
     Dates: start: 20140729, end: 20140729

REACTIONS (3)
  - Gastrointestinal perforation [Fatal]
  - Shock [Fatal]
  - Peritonitis [Fatal]

NARRATIVE: CASE EVENT DATE: 20140803
